FAERS Safety Report 9524802 (Version 4)
Quarter: 2013Q4

REPORT INFORMATION
  Report Type: Report from Study
  Country: US (occurrence: US)
  Receive Date: 20130916
  Receipt Date: 20131106
  Transmission Date: 20140711
  Serious: Yes (Other)
  Sender: FDA-Public Use
  Company Number: US-JNJFOC-20130902848

PATIENT
  Age: 22 Year
  Sex: Female
  Weight: 108.86 kg

DRUGS (7)
  1. REMICADE [Suspect]
     Indication: CROHN^S DISEASE
     Route: 042
  2. REMICADE [Suspect]
     Indication: CROHN^S DISEASE
     Dosage: 6 VIALS EVERY EIGHT WEEKS.
     Route: 042
     Dates: end: 201306
  3. REMICADE [Suspect]
     Indication: CROHN^S DISEASE
     Dosage: INITIATED AT THE END OF DEC-2012 OR EARLY JAN-2013
     Route: 042
     Dates: start: 20121115
  4. PREDNISONE [Concomitant]
     Indication: CROHN^S DISEASE
     Dosage: ONCE EVERY EIGHT WEEKS
     Route: 048
     Dates: start: 201302, end: 201306
  5. BENADRYL [Concomitant]
     Indication: PREMEDICATION
     Route: 065
  6. TYLENOL [Concomitant]
     Indication: PREMEDICATION
     Route: 065
  7. BEYAZ [Concomitant]
     Indication: CONTRACEPTION
     Route: 065

REACTIONS (12)
  - Hepatomegaly [Recovering/Resolving]
  - Kidney infection [Recovering/Resolving]
  - Urinary tract infection [Not Recovered/Not Resolved]
  - Bladder dysfunction [Not Recovered/Not Resolved]
  - Dyspepsia [Recovered/Resolved]
  - Gastric hypomotility [Recovered/Resolved]
  - Menstruation irregular [Recovered/Resolved]
  - Paraesthesia oral [Recovered/Resolved]
  - Lip swelling [Recovered/Resolved]
  - Infusion related reaction [Recovered/Resolved]
  - Pyrexia [Recovered/Resolved]
  - Stomatitis [Recovered/Resolved]
